FAERS Safety Report 5321588-2 (Version None)
Quarter: 2007Q1

REPORT INFORMATION
  Report Type: 
  Country: None (occurrence: None)
  Receive Date: 20070220
  Receipt Date: 20061023
  Transmission Date: 20070707
  Serious: No
  Sender: FDA-Public Use
  Company Number: TPA2006A01905

PATIENT
  Age: 62 Year
  Sex: Male
  Weight: 97.5234 kg

DRUGS (6)
  1. ROZEREM [Suspect]
     Indication: INSOMNIA
     Dosage: 8 MG, AS REQUIRED, PER ORAL
     Route: 048
     Dates: start: 20061005, end: 20061021
  2. GLIPIZIDE [Concomitant]
  3. GLUCOPHAGE [Concomitant]
  4. AVANDIA (ROIGLITAZONE MALEATE) [Concomitant]
  5. LANTUS [Concomitant]
  6. LIPITOR [Concomitant]

REACTIONS (2)
  - DIZZINESS [None]
  - NAUSEA [None]
